FAERS Safety Report 5276943-6 (Version None)
Quarter: 2007Q1

REPORT INFORMATION
  Report Type: 
  Country: None (occurrence: None)
  Receive Date: 20070327
  Receipt Date: 20070315
  Transmission Date: 20070707
  Serious: Yes (Hospitalization)
  Sender: FDA-Public Use
  Company Number: ITWYE982512MAR07

PATIENT
  Sex: Male

DRUGS (1)
  1. ENBREL [Suspect]
     Indication: ANKYLOSING SPONDYLITIS
     Route: 058
     Dates: start: 20060301

REACTIONS (4)
  - CAPILLARY FRAGILITY [None]
  - EYE SWELLING [None]
  - HEADACHE [None]
  - RETINAL TEAR [None]
